FAERS Safety Report 7018811-5 (Version None)
Quarter: 2010Q3

REPORT INFORMATION
  Report Type: 
  Country: None (occurrence: None)
  Receive Date: 20100928
  Receipt Date: 20100922
  Transmission Date: 20110219
  Serious: Yes (Other)
  Sender: FDA-Public Use
  Company Number: US-PFIZER INC-2010121080

PATIENT

DRUGS (1)
  1. CORTEF [Suspect]
     Indication: ADRENAL DISORDER
     Dosage: 5MG IN AM, 2.5MG PM, 2X/DAY
     Dates: start: 20100901

REACTIONS (7)
  - DYSPHAGIA [None]
  - EYE SWELLING [None]
  - FATIGUE [None]
  - OCULAR HYPERAEMIA [None]
  - PAIN IN EXTREMITY [None]
  - SWOLLEN TONGUE [None]
  - VISUAL ACUITY REDUCED [None]
